FAERS Safety Report 7138944-2 (Version None)
Quarter: 2010Q4

REPORT INFORMATION
  Report Type: 
  Country: None (occurrence: None)
  Receive Date: 20101206
  Receipt Date: 20101129
  Transmission Date: 20110411
  Serious: Yes (Hospitalization)
  Sender: FDA-Public Use
  Company Number: A0868761A

PATIENT
  Age: 60 Year
  Sex: Male

DRUGS (5)
  1. AVANDIA [Suspect]
     Dosage: 4MG PER DAY
     Route: 048
     Dates: start: 20010101, end: 20070101
  2. ANTI-CHOLESTEROL MEDICATION [Concomitant]
  3. HYTRIN [Concomitant]
  4. LISINOPRIL [Concomitant]
  5. ACTOS [Concomitant]

REACTIONS (1)
  - CEREBROVASCULAR ACCIDENT [None]
